FAERS Safety Report 9114316 (Version 1)
Quarter: 2013Q1

REPORT INFORMATION
  Report Type: Report from Study
  Country: US (occurrence: US)
  Receive Date: 20130208
  Receipt Date: 20130208
  Transmission Date: 20140127
  Serious: Yes (Other)
  Sender: FDA-Public Use
  Company Number: US-RB-006721-10

PATIENT
  Age: 35 Year
  Sex: Female

DRUGS (1)
  1. SUBOXONE TABLET [Suspect]
     Indication: DRUG DEPENDENCE
     Route: 065
     Dates: start: 201004

REACTIONS (11)
  - Foot fracture [Recovered/Resolved]
  - Constipation [Recovered/Resolved]
  - Multiple allergies [Recovered/Resolved]
  - Dyspnoea [Recovered/Resolved]
  - Headache [Recovered/Resolved]
  - Vomiting [Recovered/Resolved]
  - Cough [Recovered/Resolved]
  - Multiple allergies [Recovered/Resolved]
  - Amnesia [Recovered/Resolved]
  - Balance disorder [Recovered/Resolved]
  - Drug dependence [Recovered/Resolved]
